FAERS Safety Report 5803100-4 (Version None)
Quarter: 2008Q2

REPORT INFORMATION
  Report Type: 
  Country: None (occurrence: None)
  Receive Date: 20080626
  Receipt Date: 20070809
  Transmission Date: 20081010
  Serious: Yes (Life-Threatening, Hospitalization)
  Sender: FDA-Public Use
  Company Number: VISP-PR-0708S-0344

PATIENT
  Age: 51 Year
  Sex: Female

DRUGS (2)
  1. VISIPAQUE [Suspect]
     Indication: CARDIAC STRESS TEST ABNORMAL
     Dosage: 5 ML, SINGLE DOSE, I.A.
     Route: 013
     Dates: start: 20070803, end: 20070803
  2. VISIPAQUE [Suspect]
     Indication: CHEST PAIN
     Dosage: 5 ML, SINGLE DOSE, I.A.
     Route: 013
     Dates: start: 20070803, end: 20070803

REACTIONS (1)
  - ANAPHYLACTOID SHOCK [None]
